FAERS Safety Report 26199129 (Version 1)
Quarter: 2025Q4

REPORT INFORMATION
  Report Type: Spontaneous
  Country: US (occurrence: US)
  Receive Date: 20251225
  Receipt Date: 20251225
  Transmission Date: 20260118
  Serious: No
  Sender: ROCHE
  Company Number: US-ROCHE-10000461330

PATIENT
  Age: 65 Year
  Sex: Female

DRUGS (2)
  1. ALECTINIB [Suspect]
     Active Substance: ALECTINIB
     Indication: Product used for unknown indication
  2. ALECTINIB [Suspect]
     Active Substance: ALECTINIB

REACTIONS (2)
  - Weight increased [Unknown]
  - Disease progression [Unknown]
